FAERS Safety Report 9013838 (Version 1)
Quarter: 2013Q1

REPORT INFORMATION
  Report Type: Spontaneous
  Country: US (occurrence: None)
  Receive Date: 20130108
  Receipt Date: 20130108
  Transmission Date: 20140127
  Serious: Yes (Other)
  Sender: FDA-Public Use
  Company Number: None

PATIENT
  Age: 20 Year
  Sex: Female
  Weight: 42.18 kg

DRUGS (1)
  1. MIRENA IUD, 52MG, BAYER HEALTHCARE PHARMACEUTICALS [Suspect]
     Indication: CONTRACEPTION
     Route: 015
     Dates: start: 20110706, end: 20121001

REACTIONS (3)
  - Hepatic failure [None]
  - Papilloma viral infection [None]
  - Smear cervix abnormal [None]
